FAERS Safety Report 7454988-5 (Version None)
Quarter: 2011Q2

REPORT INFORMATION
  Report Type: 
  Country: None (occurrence: None)
  Receive Date: 20110503
  Receipt Date: 20110422
  Transmission Date: 20111010
  Serious: Yes (Other)
  Sender: FDA-Public Use
  Company Number: US-NOVOPROD-327145

PATIENT
  Sex: Male

DRUGS (1)
  1. NOVOLOG [Suspect]
     Indication: INSULIN RESISTANT DIABETES
     Dosage: UP TO 320 UNITS DAILY

REACTIONS (4)
  - LOSS OF CONSCIOUSNESS [None]
  - HYPERTENSION [None]
  - BLOOD GLUCOSE INCREASED [None]
  - TREMOR [None]
